FAERS Safety Report 19140199 (Version 4)
Quarter: 2024Q2

REPORT INFORMATION
  Report Type: Other
  Country: CA (occurrence: CA)
  Receive Date: 20210415
  Receipt Date: 20240430
  Transmission Date: 20240716
  Serious: Yes (Hospitalization, Other)
  Sender: FDA-Public Use
  Company Number: CA-APOTEX-2021AP009013

PATIENT
  Age: 62 Year
  Sex: Male

DRUGS (10)
  1. ATORVASTATIN [Suspect]
     Active Substance: ATORVASTATIN
     Indication: Product substitution
     Dosage: 40 MILLIGRAM, QD
     Route: 048
  2. PANTOPRAZOLE [Suspect]
     Active Substance: PANTOPRAZOLE
     Indication: Product substitution
     Dosage: 40 MILLIGRAM, QD
     Route: 048
  3. TELMISARTAN [Suspect]
     Active Substance: TELMISARTAN
     Indication: Product substitution
     Dosage: 40 MILLIGRAM, QD
     Route: 048
  4. VENLAFAXINE [Suspect]
     Active Substance: VENLAFAXINE HYDROCHLORIDE
     Indication: Product substitution
     Dosage: 150 MILLIGRAM, QD
     Route: 048
  5. SANDOSTATIN LAR DEPOT [Suspect]
     Active Substance: OCTREOTIDE ACETATE
     Indication: Acromegaly
     Dosage: 30 MILLIGRAM, Q.3W
     Route: 030
  6. SANDOSTATIN [Suspect]
     Active Substance: OCTREOTIDE ACETATE
     Indication: Acromegaly
     Dosage: 30 MILLIGRAM, Q.3W
     Route: 030
  7. DIBUCAINE [Concomitant]
     Active Substance: DIBUCAINE
     Indication: Product used for unknown indication
     Dosage: UNK, Q.4H.
     Route: 061
  8. ESCULIN [Concomitant]
     Active Substance: ESCULIN
     Indication: Product used for unknown indication
     Dosage: UNK, Q.4H.
     Route: 061
  9. FRAMYCETIN [Concomitant]
     Active Substance: FRAMYCETIN
     Indication: Product used for unknown indication
     Dosage: UNK, Q.4H.
     Route: 061
  10. METFORMIN [Concomitant]
     Active Substance: METFORMIN HYDROCHLORIDE
     Indication: Product substitution
     Dosage: 500 MILLIGRAM, BID
     Route: 048

REACTIONS (30)
  - Contusion [Recovered/Resolved]
  - Crohn^s disease [Recovered/Resolved]
  - Diverticulitis [Recovered/Resolved]
  - Inappropriate schedule of product administration [Recovered/Resolved]
  - Body temperature decreased [Recovered/Resolved]
  - Blood pressure increased [Recovered/Resolved]
  - Blood pressure systolic increased [Recovered/Resolved]
  - Abdominal distension [Recovered/Resolved]
  - Decreased appetite [Recovered/Resolved]
  - Frequent bowel movements [Recovered/Resolved]
  - Haemoglobin decreased [Recovered/Resolved]
  - Needle issue [Recovered/Resolved]
  - Anxiety [Recovered/Resolved]
  - Blood pressure diastolic decreased [Recovered/Resolved]
  - Dehydration [Recovered/Resolved]
  - Injection site pain [Recovered/Resolved]
  - Loss of consciousness [Recovered/Resolved]
  - Road traffic accident [Recovered/Resolved]
  - Product dose omission issue [Recovered/Resolved]
  - Pain [Recovered/Resolved]
  - Renal injury [Recovered/Resolved]
  - Seizure [Recovered/Resolved]
  - Nasopharyngitis [Recovered/Resolved]
  - Abdominal pain [Recovered/Resolved]
  - Back pain [Recovered/Resolved]
  - Abdominal discomfort [Recovered/Resolved]
  - Constipation [Recovered/Resolved]
  - Malaise [Recovered/Resolved]
  - Nausea [Recovered/Resolved]
  - Drug ineffective [Recovered/Resolved]
